FAERS Safety Report 18929548 (Version 5)
Quarter: 2021Q2

REPORT INFORMATION
  Report Type: Report from Study
  Country: None (occurrence: ES)
  Receive Date: 20210223
  Receipt Date: 20210603
  Transmission Date: 20210717
  Serious: Yes (Hospitalization)
  Sender: FDA-Public Use
  Company Number: ES-ABBVIE-21P-144-3775767-00

PATIENT
  Age: 75 Year
  Sex: Male
  Weight: 90 kg

DRUGS (25)
  1. VENETOCLAX. [Suspect]
     Active Substance: VENETOCLAX
     Indication: ACUTE MYELOID LEUKAEMIA
     Route: 048
     Dates: start: 20180227, end: 20180227
  2. VENETOCLAX. [Suspect]
     Active Substance: VENETOCLAX
     Route: 048
     Dates: start: 20190705, end: 20210207
  3. PROCTOLOG [Concomitant]
     Active Substance: TRIMEBUTINE
     Indication: HAEMORRHOIDS
     Dosage: 1 APPLICATION
     Route: 054
     Dates: start: 20180209
  4. PARACETAMOL [Concomitant]
     Active Substance: ACETAMINOPHEN
     Indication: PAIN PROPHYLAXIS
     Route: 048
     Dates: start: 20170407
  5. TRAMADOL. [Concomitant]
     Active Substance: TRAMADOL
     Indication: HAEMORRHOIDS
     Route: 048
     Dates: start: 20180419
  6. DEXKETOPROFENO [Concomitant]
     Active Substance: DEXKETOPROFEN
     Indication: HAEMORRHOIDS
     Route: 048
     Dates: start: 20180419
  7. ONDANSETRON [Concomitant]
     Active Substance: ONDANSETRON
     Indication: PROPHYLAXIS OF NAUSEA AND VOMITING
  8. TAMSULOSINA [Concomitant]
     Active Substance: TAMSULOSIN HYDROCHLORIDE
     Indication: BENIGN PROSTATIC HYPERPLASIA
     Route: 048
     Dates: start: 20181127
  9. VENETOCLAX. [Suspect]
     Active Substance: VENETOCLAX
     Route: 048
     Dates: start: 20180228, end: 20180228
  10. AZACITIDINE. [Suspect]
     Active Substance: AZACITIDINE
     Dosage: DAYS 1?7 OF EACH 28?DAY CYCLE
     Route: 058
     Dates: start: 20210405
  11. NORMAL SALINE SOLUTION (0.9% SODIUM CHLORIDE) [Concomitant]
     Indication: PROPHYLAXIS
     Route: 042
     Dates: start: 20180225, end: 20180307
  12. ONDANSETRON [Concomitant]
     Active Substance: ONDANSETRON
     Indication: PROPHYLAXIS OF NAUSEA AND VOMITING
     Dosage: PREMEDICATION, EVERY CYCLE
     Route: 048
     Dates: start: 20191226
  13. VENETOCLAX. [Suspect]
     Active Substance: VENETOCLAX
     Route: 048
     Dates: start: 20180301, end: 20190704
  14. AZACITIDINE. [Suspect]
     Active Substance: AZACITIDINE
     Indication: ACUTE MYELOID LEUKAEMIA
     Dosage: DAYS 1?7 OF EACH 28?DAY CYCLE
     Route: 058
     Dates: start: 20180227, end: 20210124
  15. LOSARTAN. [Concomitant]
     Active Substance: LOSARTAN
     Indication: HYPERTENSION
     Route: 048
     Dates: start: 20180224
  16. DIPRODERM [Concomitant]
     Active Substance: BETAMETHASONE DIPROPIONATE
     Indication: ERYTHEMA
     Route: 061
     Dates: start: 20180502
  17. TIORFAN [Concomitant]
     Active Substance: RACECADOTRIL
     Indication: DIARRHOEA
     Route: 048
     Dates: start: 20190225
  18. VENETOCLAX. [Suspect]
     Active Substance: VENETOCLAX
     Route: 048
     Dates: start: 20210405
  19. METAMIZOL [Concomitant]
     Active Substance: METAMIZOLE SODIUM
     Indication: PAIN PROPHYLAXIS
     Route: 042
     Dates: start: 20180224
  20. INSULINA [Concomitant]
     Active Substance: INSULIN NOS
     Indication: HYPERGLYCAEMIA
     Dosage: 100 U/ML
     Route: 058
     Dates: start: 20180321
  21. VALSARTAN/HIDROCLOROTIAZIDA [Concomitant]
     Indication: HYPERTENSION
     Dosage: 320/25 MG
     Route: 048
     Dates: start: 2010
  22. VENOSMIL [Concomitant]
     Indication: HAEMORRHOIDS
     Route: 048
     Dates: start: 20180209
  23. RUSCUS LLORENS [Concomitant]
     Indication: HAEMORRHOIDS
     Dosage: 1 APPLICATION
     Route: 054
     Dates: start: 20180209
  24. ALLOPURINOL. [Concomitant]
     Active Substance: ALLOPURINOL
     Indication: PROPHYLAXIS
     Route: 048
     Dates: start: 20180225, end: 20180313
  25. OMEOPRAZOL [Concomitant]
     Indication: PROPHYLAXIS
     Route: 048
     Dates: start: 20180307

REACTIONS (2)
  - Proteus infection [Recovered/Resolved]
  - Bacteraemia [Recovered/Resolved]

NARRATIVE: CASE EVENT DATE: 20210210
